FAERS Safety Report 7651516-6 (Version None)
Quarter: 2011Q3

REPORT INFORMATION
  Report Type: 
  Country: None (occurrence: None)
  Receive Date: 20110802
  Receipt Date: 20110728
  Transmission Date: 20111222
  Serious: Yes (Death)
  Sender: FDA-Public Use
  Company Number: PHEH2009US08940

PATIENT
  Sex: Female

DRUGS (1)
  1. ZOMETA [Suspect]
     Dosage: 4 MG, MONTHLY
     Dates: start: 20030101

REACTIONS (10)
  - PAIN [None]
  - JAW DISORDER [None]
  - HYPOPHAGIA [None]
  - DEFORMITY [None]
  - OSTEOLYSIS [None]
  - OSTEONECROSIS OF JAW [None]
  - INFECTION [None]
  - WEIGHT DECREASED [None]
  - GENERAL PHYSICAL HEALTH DETERIORATION [None]
  - EXPOSED BONE IN JAW [None]
